FAERS Safety Report 13164133 (Version 2)
Quarter: 2017Q1

REPORT INFORMATION
  Report Type: Spontaneous
  Country: IT (occurrence: IT)
  Receive Date: 20170130
  Receipt Date: 20170203
  Transmission Date: 20170428
  Serious: Yes (Other)
  Sender: FDA-Public Use
  Company Number: IT-TEVA-733706ACC

PATIENT
  Age: 21 Year
  Sex: Male

DRUGS (4)
  1. CISPLATIN. [Suspect]
     Active Substance: CISPLATIN
     Indication: GASTROINTESTINAL NEOPLASM
     Dosage: 100 MG CYCLICAL
     Route: 042
     Dates: start: 20161102, end: 20161205
  2. FLUOROURACIL. [Suspect]
     Active Substance: FLUOROURACIL
     Indication: GASTROINTESTINAL NEOPLASM
     Dosage: 4000 MG CYCLICAL
     Route: 042
     Dates: start: 20161102, end: 20161205
  3. TRASTUZUMAB [Suspect]
     Active Substance: TRASTUZUMAB
     Indication: GASTROINTESTINAL NEOPLASM
     Dosage: 550 MG CYCLICAL
     Route: 042
     Dates: start: 20161102, end: 20161205
  4. PLASIL - 10 MG/2 ML SOLUZIONE INIETTABILE [Concomitant]
     Indication: PRODUCT USED FOR UNKNOWN INDICATION

REACTIONS (1)
  - Hypertransaminasaemia [Unknown]

NARRATIVE: CASE EVENT DATE: 20161205
